FAERS Safety Report 5988589-2 (Version None)
Quarter: 2008Q4

REPORT INFORMATION
  Report Type: 
  Country: None (occurrence: None)
  Receive Date: 20081208
  Receipt Date: 20081208
  Transmission Date: 20090506
  Serious: Yes (Other)
  Sender: FDA-Public Use
  Company Number: None

PATIENT
  Age: 49 Year
  Sex: Female
  Weight: 81.6475 kg

DRUGS (2)
  1. PROAIR HFA [Suspect]
     Indication: ASTHMA
     Dosage: 2 PUFFS 3X/DAY 10-12 PUFFS PER DA
     Dates: start: 20080301, end: 20081205
  2. PROVENTIL [Suspect]

REACTIONS (6)
  - DRUG EFFECT DECREASED [None]
  - DYSPNOEA [None]
  - FEELING ABNORMAL [None]
  - PARADOXICAL DRUG REACTION [None]
  - PRODUCT QUALITY ISSUE [None]
  - WHEEZING [None]
